FAERS Safety Report 5721658-0 (Version None)
Quarter: 2008Q2

REPORT INFORMATION
  Report Type: 
  Country: None (occurrence: None)
  Receive Date: 20080424
  Receipt Date: 20080414
  Transmission Date: 20081010
  Serious: Yes (Hospitalization)
  Sender: FDA-Public Use
  Company Number: 062-C5013-07070156

PATIENT
  Age: 68 Year
  Sex: Male
  Weight: 76 kg

DRUGS (3)
  1. CC-5013 (LENALIDOMIDE)   (CAPSULES) [Suspect]
     Indication: MULTIPLE MYELOMA
     Dosage: 25 MG, DAYS 1-21, ORAL
     Route: 048
     Dates: start: 20070607, end: 20070627
  2. DEXAMETHASONE TAB [Suspect]
     Indication: MULTIPLE MYELOMA
     Dosage: 40 MG, DAY 1-4, 9-12, 17-20,
     Dates: start: 20070607, end: 20070626
  3. BONDRONAT (IBANDRONIC ACID) [Concomitant]

REACTIONS (10)
  - CHILLS [None]
  - ENTEROBACTER INFECTION [None]
  - HERPES ZOSTER [None]
  - MIOSIS [None]
  - POST HERPETIC NEURALGIA [None]
  - PSEUDOMONAS INFECTION [None]
  - RESPIRATORY FAILURE [None]
  - SOMNOLENCE [None]
  - SPUTUM CULTURE POSITIVE [None]
  - SUBILEUS [None]
